FAERS Safety Report 24219118 (Version 1)
Quarter: 2024Q3

REPORT INFORMATION
  Report Type: Spontaneous
  Country: GB (occurrence: GB)
  Receive Date: 20240816
  Receipt Date: 20240816
  Transmission Date: 20241016
  Serious: Yes (Other)
  Sender: MYLAN
  Company Number: GB-MHRA-TPP23555454C20296253YC1723481064791

PATIENT
  Age: 67 Year
  Sex: Female
  Weight: 68 kg

DRUGS (11)
  1. TRAMADOL [Suspect]
     Active Substance: TRAMADOL\TRAMADOL HYDROCHLORIDE
     Indication: Ill-defined disorder
     Dosage: 50 MILLIGRAM
     Route: 065
     Dates: start: 20240807
  2. FLUCONAZOLE [Concomitant]
     Active Substance: FLUCONAZOLE
     Indication: Ill-defined disorder
     Dosage: 1 DOSAGE FORM (TAKE ONE AS DIRECTED)
     Route: 065
     Dates: start: 20240520, end: 20240520
  3. MICONAZOLE [Concomitant]
     Active Substance: MICONAZOLE\MICONAZOLE NITRATE
     Indication: Ill-defined disorder
     Dosage: 2.5 MILLILITER, QID (PLACE 2.5ML IN THE MOUTH FOUR TIMES DAILY FOR 1)
     Route: 065
     Dates: start: 20240520, end: 20240603
  4. NYSTATIN [Concomitant]
     Active Substance: NYSTATIN
     Indication: Ill-defined disorder
     Dosage: 1 MILLILITER (1ML TO BE RINSED AROUND THE MOUTH AND THEN SWAL.)
     Route: 065
     Dates: start: 20240520, end: 20240603
  5. Vagirux [Concomitant]
     Indication: Ill-defined disorder
     Dosage: 1 DOSAGE FORM, QD (ONE TO BE INSERTED INTO THE VAGINA DAILY FOR TH...)
     Route: 065
     Dates: start: 20240627
  6. CODEINE PHOSPHATE [Concomitant]
     Active Substance: CODEINE PHOSPHATE
     Indication: Ill-defined disorder
     Dosage: 1 DOSAGE FORM, QID (TAKE ONE 4 TIMES/DAY)
     Route: 065
     Dates: start: 20240720, end: 20240804
  7. CARBOCYSTEINE [Concomitant]
     Active Substance: CARBOCYSTEINE
     Indication: Ill-defined disorder
     Dosage: 2 DOSAGE FORM, TID (2 THREE TIMES A DAY)
     Route: 065
     Dates: start: 20231201
  8. CITALOPRAM [Concomitant]
     Active Substance: CITALOPRAM\CITALOPRAM HYDROBROMIDE
     Indication: Ill-defined disorder
     Dosage: 1 DOSAGE FORM, QD (TAKE ONE TABLET ONCE A DAY)
     Route: 065
     Dates: start: 20231201
  9. EZETIMIBE [Concomitant]
     Active Substance: EZETIMIBE
     Indication: Ill-defined disorder
     Dosage: 1 DOSAGE FORM, QD (TAKE ONE DAILY)
     Route: 065
     Dates: start: 20231201
  10. ALBUTEROL [Concomitant]
     Active Substance: ALBUTEROL
     Indication: Ill-defined disorder
     Dosage: 2 DOSAGE FORM (INHALE 2 DOSES AS NEEDED)
     Route: 065
     Dates: start: 20231201
  11. BECLOMETHASONE DIPROPIONATE\FORMOTEROL FUMARATE\GLYCOPYRROLATE [Concomitant]
     Active Substance: BECLOMETHASONE DIPROPIONATE\FORMOTEROL FUMARATE\GLYCOPYRROLATE
     Indication: Ill-defined disorder
     Dosage: 2 DOSAGE FORM, BID (TWO PUFFS TWICE DAILY)
     Route: 065
     Dates: start: 20231201

REACTIONS (2)
  - Chest pain [Recovered/Resolved]
  - Muscular weakness [Unknown]

NARRATIVE: CASE EVENT DATE: 20240807
